FAERS Safety Report 10757261 (Version 1)
Quarter: 2015Q1

REPORT INFORMATION
  Report Type: Spontaneous
  Country: GB (occurrence: None)
  Receive Date: 20150130
  Receipt Date: 20150130
  Transmission Date: 20150721
  Serious: Yes (Other)
  Sender: FDA-Public Use
  Company Number: IPC201501-000034

PATIENT

DRUGS (1)
  1. ALLOPURINOL (ALLOPURINOL) (ALLOPURINOL) [Suspect]
     Active Substance: ALLOPURINOL
     Indication: INFLAMMATORY BOWEL DISEASE

REACTIONS (2)
  - Off label use [None]
  - Chronic obstructive pulmonary disease [None]
